FAERS Safety Report 17678704 (Version 1)
Quarter: 2020Q2

REPORT INFORMATION
  Report Type: Spontaneous
  Country: NO (occurrence: NO)
  Receive Date: 20200417
  Receipt Date: 20200417
  Transmission Date: 20200714
  Serious: Yes (Other)
  Sender: FDA-Public Use
  Company Number: NO-TEVA-2020-NO-1224924

PATIENT
  Age: 35 Year
  Sex: Female

DRUGS (4)
  1. OLANZAPINE TEVA [Suspect]
     Active Substance: OLANZAPINE
     Route: 048
  2. QUETIAPIN SANDOZ [Interacting]
     Active Substance: QUETIAPINE
     Dosage: 150MG VESP
     Route: 048
  3. MYSIMBA [Interacting]
     Active Substance: BUPROPION HYDROCHLORIDE\NALTREXONE HYDROCHLORIDE
     Indication: OBESITY
     Dosage: ESCALATION OVER 4 WEEKS TO 2 + 2; FOR ACTIVE INGREDIENT BUPROPION THE STRENGTH IS 90 MILLIGRAM .FOR
     Route: 048
     Dates: start: 20200309, end: 20200403
  4. CIPRALEX [Interacting]
     Active Substance: ESCITALOPRAM OXALATE
     Route: 048

REACTIONS (2)
  - Drug interaction [Unknown]
  - Seizure like phenomena [Not Recovered/Not Resolved]
